FAERS Safety Report 6828316-X (Version None)
Quarter: 2010Q3

REPORT INFORMATION
  Report Type: 
  Country: None (occurrence: None)
  Receive Date: 20100709
  Receipt Date: 20070205
  Transmission Date: 20110219
  Serious: No
  Sender: FDA-Public Use
  Company Number: US-PFIZER INC-2007010285

PATIENT
  Age: 58 Year
  Sex: Female
  Weight: 44.45 kg

DRUGS (3)
  1. CHANTIX [Suspect]
     Indication: SMOKING CESSATION THERAPY
     Dates: start: 20070203
  2. AMBIEN [Concomitant]
     Indication: SLEEP DISORDER
  3. LISINOPRIL [Concomitant]
     Indication: HYPERTENSION

REACTIONS (4)
  - ABNORMAL DREAMS [None]
  - INITIAL INSOMNIA [None]
  - MIDDLE INSOMNIA [None]
  - NAUSEA [None]
